FAERS Safety Report 4268847-2 (Version None)
Quarter: 2004Q1

REPORT INFORMATION
  Report Type: 
  Country: None (occurrence: None)
  Receive Date: 20040109
  Receipt Date: 20031224
  Transmission Date: 20041129
  Serious: Yes (Hospitalization)
  Sender: FDA-Public Use
  Company Number: USA031255376

PATIENT
  Age: 37 Year
  Sex: Female
  Weight: 91 kg

DRUGS (1)
  1. HUMULIN 70/30 [Suspect]
     Dates: start: 19990101

REACTIONS (3)
  - DYSPEPSIA [None]
  - HYPERTENSION [None]
  - SLEEP APNOEA SYNDROME [None]
